FAERS Safety Report 9223134 (Version 1)
Quarter: 2013Q2

REPORT INFORMATION
  Report Type: Spontaneous
  Country: US (occurrence: US)
  Receive Date: 20130410
  Receipt Date: 20130410
  Transmission Date: 20140414
  Serious: Yes (Other)
  Sender: FDA-Public Use
  Company Number: PHEH2013US007786

PATIENT
  Sex: Male

DRUGS (2)
  1. EXELON PATCH [Suspect]
     Dosage: 4.6 MG, ONCE A DAY
     Route: 062
     Dates: start: 1999
  2. TRILEPTAL [Suspect]
     Dosage: 300 MG, BID
     Dates: start: 1997

REACTIONS (2)
  - Convulsion [Unknown]
  - Constipation [Unknown]
